FAERS Safety Report 10589699 (Version 3)
Quarter: 2014Q4

REPORT INFORMATION
  Report Type: Spontaneous
  Country: JP (occurrence: JP)
  Receive Date: 20141118
  Receipt Date: 20141205
  Transmission Date: 20150529
  Serious: Yes (Death, Hospitalization)
  Sender: FDA-Public Use
  Company Number: PHHY2014JP149715

PATIENT
  Age: 64 Year
  Sex: Male
  Weight: 58 kg

DRUGS (4)
  1. NEXIUM [Concomitant]
     Active Substance: ESOMEPRAZOLE MAGNESIUM
     Indication: GASTRIC ULCER
     Dosage: 10 MG
     Route: 048
     Dates: start: 20140807
  2. EXJADE [Suspect]
     Active Substance: DEFERASIROX
     Indication: MYELOFIBROSIS
     Dosage: 500 MG, QD
     Route: 048
     Dates: start: 20140619, end: 20140716
  3. PRIMOBOLAN-DEPOT [Concomitant]
     Active Substance: METHENOLONE ENANTHATE
     Indication: BONE MARROW FAILURE
     Dosage: 5 MG
     Route: 048
     Dates: start: 20141009
  4. EXJADE [Suspect]
     Active Substance: DEFERASIROX
     Dosage: 750 MG, QD
     Route: 048
     Dates: start: 20140117, end: 20141015

REACTIONS (6)
  - Circulatory collapse [Fatal]
  - Cardiopulmonary failure [Fatal]
  - Respiratory distress [Unknown]
  - Myelofibrosis [Fatal]
  - Anaemia [Unknown]
  - Respiratory failure [Fatal]

NARRATIVE: CASE EVENT DATE: 201409
